FAERS Safety Report 4725003-9 (Version None)
Quarter: 2005Q3

REPORT INFORMATION
  Report Type: 
  Country: None (occurrence: None)
  Receive Date: 20050722
  Receipt Date: 20050715
  Transmission Date: 20060218
  Serious: Yes (Other)
  Sender: FDA-Public Use
  Company Number: 2005-07-0733

PATIENT
  Age: 45 Year
  Sex: Male

DRUGS (4)
  1. INTRON A [Suspect]
     Indication: MALIGNANT MELANOMA
     Dosage: SEE IMAGE
     Route: 042
     Dates: start: 20050217, end: 20050317
  2. INTRON A [Suspect]
     Indication: MALIGNANT MELANOMA
     Dosage: SEE IMAGE
     Route: 042
     Dates: start: 20050217, end: 20050713
  3. INTRON A [Suspect]
     Indication: MALIGNANT MELANOMA
     Dosage: SEE IMAGE
     Route: 042
     Dates: start: 20050318, end: 20050713
  4. PARACETAMOL [Concomitant]

REACTIONS (3)
  - RETINAL EXUDATES [None]
  - RETINAL HAEMORRHAGE [None]
  - VISUAL FIELD DEFECT [None]
